FAERS Safety Report 10640450 (Version 2)
Quarter: 2014Q4

REPORT INFORMATION
  Report Type: Spontaneous
  Country: US (occurrence: US)
  Receive Date: 20141209
  Receipt Date: 20141209
  Transmission Date: 20150529
  Serious: No
  Sender: FDA-Public Use
  Company Number: US-TEVA-454570USA

PATIENT
  Sex: Male

DRUGS (4)
  1. INDERAL-LA [Concomitant]
     Indication: TACHYCARDIA
  2. METOPROLOL [Concomitant]
     Active Substance: METOPROLOL
  3. CLOZAPINE. [Suspect]
     Active Substance: CLOZAPINE
     Indication: PSYCHOTIC DISORDER
  4. CLOZAPINE. [Suspect]
     Active Substance: CLOZAPINE
     Indication: SCHIZOPHRENIA

REACTIONS (2)
  - Sedation [Unknown]
  - Drug level increased [Recovered/Resolved]
